FAERS Safety Report 10750531 (Version 1)
Quarter: 2015Q1

REPORT INFORMATION
  Report Type: Spontaneous
  Country: US (occurrence: US)
  Receive Date: 20150130
  Receipt Date: 20150130
  Transmission Date: 20150721
  Serious: Yes (Other)
  Sender: FDA-Public Use
  Company Number: US-ASTRAZENECA-2015SE07493

PATIENT
  Sex: Female
  Weight: 46.7 kg

DRUGS (10)
  1. METOPROLOL SUCCINATE. [Suspect]
     Active Substance: METOPROLOL SUCCINATE
     Indication: HYPERTENSION
     Route: 048
  2. SIMVASTATIN. [Concomitant]
     Active Substance: SIMVASTATIN
     Indication: BLOOD CHOLESTEROL ABNORMAL
     Route: 048
  3. SYMBICORT [Suspect]
     Active Substance: BUDESONIDE\FORMOTEROL FUMARATE DIHYDRATE
     Indication: CHRONIC OBSTRUCTIVE PULMONARY DISEASE
     Dosage: 80/4.5 MCG, TWO PUFFS, TWO TIMES A DAY
     Route: 055
  4. DONEPEZIL [Concomitant]
     Active Substance: DONEPEZIL
     Indication: MEMORY IMPAIRMENT
     Route: 048
  5. VIT D 3 [Concomitant]
     Indication: BONE DISORDER
     Route: 048
  6. CALCIUM MAGNESIUM ZINC [Concomitant]
     Active Substance: CALCIUM\MAGNESIUM\ZINC
     Indication: BONE DISORDER
     Route: 048
  7. MERTAZAPINE [Concomitant]
     Active Substance: MIRTAZAPINE
     Indication: MEMORY IMPAIRMENT
     Route: 048
  8. ASPIRIN. [Concomitant]
     Active Substance: ASPIRIN
  9. POTASSIUM [Concomitant]
     Active Substance: POTASSIUM
     Route: 048
  10. VITAMIN B12 [Concomitant]
     Active Substance: CYANOCOBALAMIN
     Route: 048

REACTIONS (4)
  - Fall [Unknown]
  - Hip fracture [Unknown]
  - Weight decreased [Not Recovered/Not Resolved]
  - Dyspnoea [Not Recovered/Not Resolved]

NARRATIVE: CASE EVENT DATE: 2014
